FAERS Safety Report 6942510-9 (Version None)
Quarter: 2010Q3

REPORT INFORMATION
  Report Type: 
  Country: None (occurrence: None)
  Receive Date: 20100826
  Receipt Date: 20100819
  Transmission Date: 20110219
  Serious: Yes (Other)
  Sender: FDA-Public Use
  Company Number: MX-ELI_LILLY_AND_COMPANY-MX201008005776

PATIENT
  Age: 45 Year
  Sex: Female
  Weight: 84 kg

DRUGS (2)
  1. HUMALOG MIX 75/25 [Suspect]
     Indication: TYPE 2 DIABETES MELLITUS
     Dosage: 45 IU, UNK
     Route: 058
     Dates: start: 20050101
  2. METFORMIN [Concomitant]
     Indication: DIABETES MELLITUS
     Dosage: 850 MG, DAILY (1/D)

REACTIONS (5)
  - CATARACT [None]
  - CHEMOTHERAPY [None]
  - INJECTION SITE HAEMATOMA [None]
  - INJECTION SITE PAIN [None]
  - VISUAL ACUITY REDUCED [None]
